FAERS Safety Report 5039387-8 (Version None)
Quarter: 2006Q2

REPORT INFORMATION
  Report Type: 
  Country: None (occurrence: None)
  Receive Date: 20060629
  Receipt Date: 20060605
  Transmission Date: 20061013
  Serious: Yes (Disabling)
  Sender: FDA-Public Use
  Company Number: AU-BRISTOL-MYERS SQUIBB COMPANY-13402078

PATIENT
  Sex: Female

DRUGS (2)
  1. KENACORT [Suspect]
     Indication: TENDONITIS
     Dates: start: 19980101
  2. TEGRETOL [Concomitant]
     Indication: EPILEPSY

REACTIONS (10)
  - ABNORMAL SENSATION IN EYE [None]
  - FATIGUE [None]
  - HEADACHE [None]
  - HYPOTHYROIDISM [None]
  - INSOMNIA [None]
  - INTRACRANIAL PRESSURE INCREASED [None]
  - MUSCULAR WEAKNESS [None]
  - MYASTHENIA GRAVIS [None]
  - VERTIGO [None]
  - VISION BLURRED [None]
